FAERS Safety Report 8436471-3 (Version None)
Quarter: 2012Q2

REPORT INFORMATION
  Report Type: 
  Country: None (occurrence: None)
  Receive Date: 20120614
  Receipt Date: 20120606
  Transmission Date: 20120825
  Serious: Yes (Hospitalization)
  Sender: FDA-Public Use
  Company Number: US-BAYER-2011-070682

PATIENT
  Age: 28 Year
  Sex: Female
  Weight: 74.83 kg

DRUGS (5)
  1. ASCORBIC ACID [Concomitant]
  2. YASMIN [Suspect]
     Dosage: UNK
     Dates: start: 20060101, end: 20070101
  3. NSAID'S [Concomitant]
     Dosage: UNK
  4. YAZ [Suspect]
     Dosage: UNK
     Dates: start: 20070101
  5. YASMIN [Suspect]
     Dosage: UNK
     Dates: start: 20070101, end: 20080101

REACTIONS (7)
  - ANHEDONIA [None]
  - VENA CAVA THROMBOSIS [None]
  - INJURY [None]
  - PORTAL VEIN THROMBOSIS [None]
  - PAIN [None]
  - VENOUS THROMBOSIS [None]
  - ANXIETY [None]
